FAERS Safety Report 14525927 (Version 1)
Quarter: 2018Q1

REPORT INFORMATION
  Report Type: Spontaneous
  Country: IT (occurrence: IT)
  Receive Date: 20180213
  Receipt Date: 20180213
  Transmission Date: 20180509
  Serious: Yes (Hospitalization)
  Sender: FDA-Public Use
  Company Number: IT-MYLANLABS-2018M1008579

PATIENT
  Age: 66 Year
  Sex: Male

DRUGS (4)
  1. PROPAFENONE. [Suspect]
     Active Substance: PROPAFENONE
     Indication: EXTRASYSTOLES
     Dosage: 400 MG, QD (200 MG, BID)
  2. ENALAPRIL [Concomitant]
     Active Substance: ENALAPRIL
     Indication: HYPERTENSION
     Dosage: 20 ML, QD
  3. GLIBENCLAMIDE [Concomitant]
     Active Substance: GLYBURIDE
     Indication: TYPE 2 DIABETES MELLITUS
     Dosage: 5 MG, QD
  4. INSULIN [Concomitant]
     Active Substance: INSULIN NOS
     Indication: TYPE 2 DIABETES MELLITUS
     Dosage: 30 UI, QD

REACTIONS (1)
  - Cholestasis [Recovered/Resolved]
